FAERS Safety Report 6811370-9 (Version None)
Quarter: 2010Q2

REPORT INFORMATION
  Report Type: 
  Country: None (occurrence: None)
  Receive Date: 20100629
  Receipt Date: 20100629
  Transmission Date: 20101027
  Serious: No
  Sender: FDA-Public Use
  Company Number: None

PATIENT
  Age: 63 Year
  Sex: Male
  Weight: 90.7194 kg

DRUGS (1)
  1. TRICOR [Suspect]
     Dosage: ONCE A DAY

REACTIONS (2)
  - FATIGUE [None]
  - PAIN IN EXTREMITY [None]
